FAERS Safety Report 7921596-9 (Version None)
Quarter: 2011Q4

REPORT INFORMATION
  Report Type: 
  Country: None (occurrence: None)
  Receive Date: 20111117
  Receipt Date: 20111115
  Transmission Date: 20120403
  Serious: Yes (Life-Threatening, Hospitalization, Other)
  Sender: FDA-Public Use
  Company Number: US-BAYER-2011-110610

PATIENT
  Age: 33 Year
  Sex: Female

DRUGS (2)
  1. ALCOHOL [Suspect]
     Indication: ALCOHOL POISONING
     Dosage: A BOTTLE
     Route: 048
  2. ASPIRIN [Suspect]
     Indication: INTENTIONAL OVERDOSE
     Dosage: 1 BOTTLE OF ASPIRIN AND ALCOHOL
     Route: 048

REACTIONS (6)
  - HYPERCHLORAEMIA [None]
  - METABOLIC ACIDOSIS [None]
  - RESPIRATORY ALKALOSIS [None]
  - TACHYPNOEA [None]
  - GRAND MAL CONVULSION [None]
  - TACHYCARDIA [None]
